FAERS Safety Report 5120204-2 (Version None)
Quarter: 2006Q4

REPORT INFORMATION
  Report Type: 
  Country: None (occurrence: None)
  Receive Date: 20061002
  Receipt Date: 20061002
  Transmission Date: 20070319
  Serious: Yes (Hospitalization)
  Sender: FDA-Public Use
  Company Number: None

PATIENT
  Age: 74 Year
  Sex: Male
  Weight: 87 kg

DRUGS (2)
  1. SEPTRA DS [Suspect]
     Indication: CELLULITIS
     Dosage: 1 TABLET BID PO
     Route: 048
  2. CIPROFLOXACIN [Suspect]
     Indication: CELLULITIS
     Dosage: 500 MG BID PO
     Route: 048

REACTIONS (2)
  - HYPOGLYCAEMIA [None]
  - RENAL FAILURE ACUTE [None]
